FAERS Safety Report 9696998 (Version 1)
Quarter: 2013Q4

REPORT INFORMATION
  Report Type: Spontaneous
  Country: US (occurrence: US)
  Receive Date: 20131119
  Receipt Date: 20131119
  Transmission Date: 20140711
  Serious: No
  Sender: FDA-Public Use
  Company Number: US-SANOFI-AVENTIS-2013SA093656

PATIENT
  Sex: Female

DRUGS (2)
  1. AUVI-Q [Suspect]
     Route: 065
  2. TRAINER [Suspect]
     Route: 065

REACTIONS (4)
  - Adverse event [Unknown]
  - Injury associated with device [Unknown]
  - Palpitations [Recovered/Resolved]
  - Wrong drug administered [Unknown]
